FAERS Safety Report 18315474 (Version 1)
Quarter: 2020Q3

REPORT INFORMATION
  Report Type: Spontaneous
  Country: US (occurrence: US)
  Receive Date: 20200926
  Receipt Date: 20200926
  Transmission Date: 20201103
  Serious: No
  Sender: FDA-Public Use
  Company Number: US-LUPIN PHARMACEUTICALS INC.-2020-00888

PATIENT
  Age: 47 Year
  Sex: Female

DRUGS (5)
  1. MIRTAZAPINE. [Suspect]
     Active Substance: MIRTAZAPINE
     Dosage: 15 MILLIGRAM, QD (EARLIER IN THE EVENING AROUND 6 PM)
     Route: 065
  2. METOCLOPRAMIDE. [Suspect]
     Active Substance: METOCLOPRAMIDE
     Indication: DIABETIC GASTROPARESIS
     Dosage: 30 MILLIGRAM, QD
     Route: 042
  3. MIRTAZAPINE. [Suspect]
     Active Substance: MIRTAZAPINE
     Indication: DIABETIC GASTROPARESIS
     Dosage: 15 MILLIGRAM, QD (NIGHTLY)
     Route: 065
  4. ONDANSETRON [Concomitant]
     Active Substance: ONDANSETRON
     Indication: DIABETIC GASTROPARESIS
     Dosage: 4 MILLIGRAM, QID
     Route: 065
  5. ONDANSETRON [Concomitant]
     Active Substance: ONDANSETRON
     Dosage: 4 MILLIGRAM (AS NEEDED)
     Route: 065

REACTIONS (4)
  - Drug effective for unapproved indication [None]
  - Somnolence [Recovering/Resolving]
  - Off label use [Unknown]
  - Drug ineffective [Unknown]
